FAERS Safety Report 12085608 (Version 2)
Quarter: 2016Q2

REPORT INFORMATION
  Report Type: Spontaneous
  Country: US (occurrence: US)
  Receive Date: 20160217
  Receipt Date: 20160617
  Transmission Date: 20160815
  Serious: No
  Sender: FDA-Public Use
  Company Number: US-GLAXOSMITHKLINE-US2016020672

PATIENT
  Sex: Male

DRUGS (6)
  1. COMBIVENT [Concomitant]
     Active Substance: ALBUTEROL SULFATE\IPRATROPIUM BROMIDE
  2. DILANTIN [Concomitant]
     Active Substance: PHENYTOIN
  3. ADVAIR DISKUS [Suspect]
     Active Substance: FLUTICASONE PROPIONATE\SALMETEROL XINAFOATE
     Dosage: 1 PUFF(S), UNK
     Route: 055
  4. PHENOBARBITAL. [Concomitant]
     Active Substance: PHENOBARBITAL
  5. ANORO ELLIPTA [Concomitant]
     Active Substance: UMECLIDINIUM BROMIDE\VILANTEROL TRIFENATATE
  6. BREO ELLIPTA [Suspect]
     Active Substance: FLUTICASONE FUROATE\VILANTEROL TRIFENATATE
     Indication: CHRONIC OBSTRUCTIVE PULMONARY DISEASE
     Dosage: 1 PUFF(S), QD
     Route: 055
     Dates: start: 201601, end: 20160529

REACTIONS (5)
  - Tongue ulceration [Recovering/Resolving]
  - Odynophagia [Not Recovered/Not Resolved]
  - Oropharyngeal pain [Recovering/Resolving]
  - Drug ineffective [Unknown]
  - Dry skin [Unknown]
